FAERS Safety Report 9275667 (Version 1)
Quarter: 2013Q2

REPORT INFORMATION
  Report Type: Spontaneous
  Country: US (occurrence: US)
  Receive Date: 20130507
  Receipt Date: 20130507
  Transmission Date: 20140414
  Serious: Yes (Hospitalization)
  Sender: FDA-Public Use
  Company Number: US-NOVOPROD-376893

PATIENT
  Age: 22 Year
  Sex: Female
  Weight: 79.37 kg

DRUGS (2)
  1. NOVOLOG [Suspect]
     Indication: TYPE 1 DIABETES MELLITUS
     Dosage: 2.6 UNITS PER HOUR
     Route: 058
     Dates: start: 2011
  2. NOVOLOG [Suspect]
     Dosage: SLIDING SCALE AFTER MEALS
     Route: 058

REACTIONS (2)
  - Dehydration [Unknown]
  - Diabetic ketoacidosis [Recovered/Resolved]
